FAERS Safety Report 13815957 (Version 1)
Quarter: 2017Q3

REPORT INFORMATION
  Report Type: Spontaneous
  Country: US (occurrence: US)
  Receive Date: 20170731
  Receipt Date: 20170731
  Transmission Date: 20171127
  Serious: Yes (Other)
  Sender: FDA-Public Use
  Company Number: US-SA-2016SA163676

PATIENT
  Age: 47 Year
  Sex: Female

DRUGS (2)
  1. AMBIEN [Suspect]
     Active Substance: ZOLPIDEM TARTRATE
     Dosage: MORNING
     Route: 048
     Dates: start: 20160726, end: 20160726
  2. COPAXONE [Suspect]
     Active Substance: GLATIRAMER ACETATE
     Indication: MULTIPLE SCLEROSIS
     Route: 058
     Dates: start: 20150601

REACTIONS (7)
  - Suicidal ideation [Unknown]
  - Depressed mood [Unknown]
  - Feeling of despair [Unknown]
  - Suicide attempt [Unknown]
  - Intentional overdose [Unknown]
  - Fatigue [Unknown]
  - Disturbance in attention [Unknown]

NARRATIVE: CASE EVENT DATE: 20160726
